FAERS Safety Report 8539831-5 (Version None)
Quarter: 2012Q3

REPORT INFORMATION
  Report Type: 
  Country: None (occurrence: None)
  Receive Date: 20120726
  Receipt Date: 20120720
  Transmission Date: 20120928
  Serious: Yes (Other)
  Sender: FDA-Public Use
  Company Number: UY-PFIZER INC-2012164868

PATIENT
  Sex: Male

DRUGS (2)
  1. LYRICA [Suspect]
     Indication: ROAD TRAFFIC ACCIDENT
     Dosage: 75 MG, 1X/DAY
     Dates: start: 20070701
  2. LYRICA [Suspect]
     Dosage: UNK

REACTIONS (15)
  - POLYNEUROPATHY [None]
  - DRUG INEFFECTIVE [None]
  - FEELING COLD [None]
  - PERNICIOUS ANAEMIA [None]
  - LETHARGY [None]
  - TEMPERATURE INTOLERANCE [None]
  - DRUG INTOLERANCE [None]
  - MUSCLE SPASTICITY [None]
  - HEART RATE DECREASED [None]
  - FIBROMYALGIA [None]
  - PHOTOPHOBIA [None]
  - HYPERACUSIS [None]
  - PAIN [None]
  - PERIPHERAL VASCULAR DISORDER [None]
  - BACK PAIN [None]
